FAERS Safety Report 9876521 (Version 2)
Quarter: 2014Q1

REPORT INFORMATION
  Report Type: Other
  Country: US (occurrence: US)
  Receive Date: 20140206
  Receipt Date: 20140206
  Transmission Date: 20141002
  Serious: No
  Sender: FDA-Public Use
  Company Number: US-ACORDA-ACO_35586_2013

PATIENT
  Age: 41 Year
  Sex: Female

DRUGS (12)
  1. AMPYRA [Suspect]
     Indication: GAIT DISTURBANCE
     Dosage: 10 MG, BID
     Route: 048
     Dates: start: 201006, end: 201212
  2. AMPYRA [Suspect]
     Dosage: 10 MG, BID
     Route: 048
     Dates: start: 201212
  3. MAXALT [Concomitant]
     Indication: MIGRAINE
     Dosage: 10 MG, 1 AT ONSET MAY REPEAT
     Route: 048
     Dates: start: 2012
  4. TOVIAZ [Concomitant]
     Indication: INCONTINENCE
     Dosage: 4 MG, QD
     Route: 048
     Dates: start: 201207, end: 2012
  5. TYSABRI [Concomitant]
     Indication: MULTIPLE SCLEROSIS
     Dosage: 300 MG, Q 4 WEEKS
     Route: 048
     Dates: start: 2009
  6. GABAPENTIN [Concomitant]
     Indication: NEUROPATHY PERIPHERAL
     Dosage: 600 MG, QID
     Route: 048
  7. ZOLOFT [Concomitant]
     Indication: DEPRESSION
     Dosage: 100 MG, QD
     Route: 048
  8. MICROGESTIN [Concomitant]
     Indication: MENORRHAGIA
     Dosage: 1/20
     Route: 048
  9. BACLOFEN [Concomitant]
     Indication: INCONTINENCE
     Dosage: 20 MG, TID
     Route: 048
  10. PROVIGIL [Concomitant]
     Indication: FATIGUE
     Dosage: 200 MG, QD
     Route: 048
  11. DEXILANT [Concomitant]
     Indication: GASTROOESOPHAGEAL REFLUX DISEASE
     Dosage: 60 MG, QD
     Route: 048
  12. VITAMIN B12 [Concomitant]
     Indication: VITAMIN B12 DECREASED
     Dosage: 5000 ?G, TID
     Route: 048
     Dates: start: 201108

REACTIONS (5)
  - Gait disturbance [Recovered/Resolved]
  - Musculoskeletal stiffness [Recovered/Resolved]
  - Fall [Recovered/Resolved]
  - Pain [Not Recovered/Not Resolved]
  - Mobility decreased [Unknown]
